FAERS Safety Report 9264009 (Version 6)
Quarter: 2014Q2

REPORT INFORMATION
  Report Type: Spontaneous
  Country: US (occurrence: US)
  Receive Date: 20130430
  Receipt Date: 20140627
  Transmission Date: 20141212
  Serious: Yes (Disabling)
  Sender: FDA-Public Use
  Company Number: US-009507513-1304USA017456

PATIENT
  Sex: Male

DRUGS (6)
  1. PROSCAR [Suspect]
     Indication: ANDROGENETIC ALOPECIA
     Dosage: 5 MG, QD
     Route: 048
     Dates: start: 200602, end: 20110720
  2. PROSCAR [Suspect]
     Indication: ALOPECIA
     Dosage: 1/4 OF 5MG TABLET (1.25MG) QD
     Route: 048
     Dates: start: 200810, end: 201111
  3. FINASTERIDE [Suspect]
     Indication: ALOPECIA
     Dosage: 1/4 OF 5MG TABLET (1.25MG) QD
     Route: 048
     Dates: start: 200602, end: 200806
  4. FINASTERIDE [Suspect]
     Dosage: 1/4 OF 5MG TABLET (1.25MG) QD
     Route: 048
     Dates: start: 200810, end: 201111
  5. PROPECIA [Suspect]
     Dosage: 1 MG, QD
     Route: 048
     Dates: start: 20110121
  6. FINASTERIDE [Suspect]
     Dosage: 5 MG, UNK
     Route: 048
     Dates: start: 20090728, end: 20110318

REACTIONS (9)
  - Semen volume decreased [Not Recovered/Not Resolved]
  - Erectile dysfunction [Not Recovered/Not Resolved]
  - Libido decreased [Not Recovered/Not Resolved]
  - Drug administration error [Unknown]
  - Wrong technique in drug usage process [Unknown]
  - Weight increased [Unknown]
  - Orchitis [Unknown]
  - Hyperlipidaemia [Unknown]
  - Stress [Unknown]
